FAERS Safety Report 20421392 (Version 1)
Quarter: 2022Q1

REPORT INFORMATION
  Report Type: Spontaneous
  Country: US (occurrence: US)
  Receive Date: 20220203
  Receipt Date: 20220203
  Transmission Date: 20220423
  Serious: Yes (Hospitalization)
  Sender: FDA-Public Use
  Company Number: US-CELGENE-USA-20220104780

PATIENT
  Sex: Male
  Weight: 72.640 kg

DRUGS (1)
  1. INREBIC [Suspect]
     Active Substance: FEDRATINIB HYDROCHLORIDE
     Indication: Myelofibrosis
     Dosage: 300 MILLIGRAM
     Route: 048
     Dates: start: 2020

REACTIONS (1)
  - Pneumonia [Recovered/Resolved]
